FAERS Safety Report 6713119-7 (Version None)
Quarter: 2010Q2

REPORT INFORMATION
  Report Type: 
  Country: None (occurrence: None)
  Receive Date: 20100506
  Receipt Date: 20090520
  Transmission Date: 20101027
  Serious: No
  Sender: FDA-Public Use
  Company Number: A0785317A

PATIENT
  Age: 20 Year
  Sex: Female

DRUGS (7)
  1. AMOXICILLIN [Suspect]
     Indication: DRUG USE FOR UNKNOWN INDICATION
     Route: 048
     Dates: start: 19860101, end: 19860101
  2. LAMICTAL [Suspect]
     Indication: DEPRESSION
     Route: 048
     Dates: start: 20080101, end: 20080101
  3. WELLBUTRIN XL [Concomitant]
     Indication: DEPRESSION
  4. AMBIEN [Concomitant]
  5. NEXIUM [Concomitant]
  6. LORAZEPAM [Concomitant]
  7. FISH OIL [Concomitant]

REACTIONS (3)
  - LYMPH NODE PAIN [None]
  - LYMPHADENOPATHY [None]
  - URTICARIA [None]
